FAERS Safety Report 8398991-X (Version None)
Quarter: 2012Q2

REPORT INFORMATION
  Report Type: 
  Country: None (occurrence: None)
  Receive Date: 20120531
  Receipt Date: 20120524
  Transmission Date: 20120825
  Serious: Yes (Hospitalization)
  Sender: FDA-Public Use
  Company Number: NL-ROCHE-786080

PATIENT
  Sex: Female
  Weight: 83 kg

DRUGS (13)
  1. DOXORUBICIN HYDROCHLORIDE [Suspect]
     Indication: DIFFUSE LARGE B-CELL LYMPHOMA
     Dosage: LAST DOSE PRIOR TO SAE 19 APRIL 2011 - CYCLE 3 OF INDUCTION PHASE.
     Route: 042
  2. FILGRASTIM [Suspect]
     Indication: DIFFUSE LARGE B-CELL LYMPHOMA
     Dosage: LAST DOSE PRIOR TO SAE 20 APRIL 2011 - CYCLE 3 OF INDUCTION PHASE.
     Route: 058
  3. LISINOPRIL [Concomitant]
     Indication: MYOCARDIAL INFARCTION
     Dosage: LAST DOSE PRIOR TO SAE 20 APRIL 2011
     Route: 048
  4. TOLBUTAMIDE [Concomitant]
     Indication: DIABETES MELLITUS
     Dosage: LAST DOSE PRIOR TO SAE 28 APRIL 2011
     Route: 048
  5. VINCRISTINE [Suspect]
     Indication: DIFFUSE LARGE B-CELL LYMPHOMA
     Dosage: LAST DOSE PRIOR TO SAE 19 APRIL 2011 - CYCLE 3 OF INDUCTION PHASE.
     Route: 042
  6. METOPROLOL TARTRATE [Concomitant]
     Indication: ANGINA PECTORIS
     Dosage: DRUG REPORTED AS METOPROLOL RETAICT LAST DOSE PRIOR TO SAE 28 APRIL 2011
     Route: 048
  7. CYCLOPHOSPHAMIDE [Suspect]
     Indication: DIFFUSE LARGE B-CELL LYMPHOMA
     Dosage: LAST DOSE PRIOR TO SAE 19 APRIL 2011 - CYCLE 3 OF INDUCTION PHASE.
     Route: 042
  8. SIMVASTATIN [Concomitant]
     Dosage: DRUG REPORTED AS SIMVASIAKNE LAST DOSE PRIOR TO SAE 28 APRIL 2011
     Route: 048
  9. AMLODIPINE [Concomitant]
     Indication: ANGINA PECTORIS
  10. MABTHERA [Suspect]
     Indication: DIFFUSE LARGE B-CELL LYMPHOMA
     Dosage: LAST DOSE PRIOR TO SAE 19 APRIL 2010 - CYCLE 3 OF INDUCTION PHASE.
     Route: 042
  11. PREDNISONE AND PREDNISONE [Suspect]
     Indication: DIFFUSE LARGE B-CELL LYMPHOMA
     Dosage: LAST DOSE PRIOR TO SAE 23 APRIL 2010 - CYCLE 3 OF INDUCTION PHASE.
     Route: 048
  12. ASCAL [Concomitant]
     Indication: THROMBOSIS
     Dosage: LAST DOSE PRIOR TO SAE 28 APRIL 2011
     Route: 048
  13. CLOMIPRAMINE HCL [Concomitant]
     Indication: DEPRESSION
     Dosage: DRUG REPORTED AS CLOMEPRAMIC LAST DOSE  28 APRIL 2011
     Route: 048

REACTIONS (1)
  - DEEP VEIN THROMBOSIS [None]
